FAERS Safety Report 10095058 (Version 3)
Quarter: 2015Q1

REPORT INFORMATION
  Report Type: Spontaneous
  Country: US (occurrence: US)
  Receive Date: 20140422
  Receipt Date: 20150219
  Transmission Date: 20150720
  Serious: Yes (Hospitalization)
  Sender: FDA-Public Use
  Company Number: US-BAYER-2014-058002

PATIENT
  Age: 26 Year
  Sex: Female
  Weight: 81.63 kg

DRUGS (5)
  1. MIRENA [Suspect]
     Active Substance: LEVONORGESTREL
     Indication: CONTRACEPTION
     Dosage: UNK
  2. TORADOL [Concomitant]
     Active Substance: KETOROLAC TROMETHAMINE
     Indication: PAIN
  3. PRILOSEC [Concomitant]
     Active Substance: OMEPRAZOLE MAGNESIUM
  4. MIRENA [Suspect]
     Active Substance: LEVONORGESTREL
     Indication: CONTRACEPTION
     Dosage: 20 MCG/24HR, CONT
     Route: 015
     Dates: start: 20101102, end: 20130222
  5. NORCO [Concomitant]
     Active Substance: ACETAMINOPHEN\HYDROCODONE BITARTRATE

REACTIONS (13)
  - Pain [None]
  - Uterine perforation [None]
  - Emotional distress [None]
  - Fear [None]
  - Depression [None]
  - Complication of device removal [None]
  - Device dislocation [None]
  - Anxiety [None]
  - Injury [None]
  - Internal injury [None]
  - Depressed mood [None]
  - Genital haemorrhage [None]
  - Medical device discomfort [None]

NARRATIVE: CASE EVENT DATE: 201211
